FAERS Safety Report 19151690 (Version 28)
Quarter: 2022Q4

REPORT INFORMATION
  Report Type: Other
  Country: CA (occurrence: None)
  Receive Date: 20210419
  Receipt Date: 20221222
  Transmission Date: 20230112
  Serious: Yes (Other)
  Sender: FDA-Public Use
  Company Number: CA-ROCHE-2671607

PATIENT
  Age: 65 Year
  Sex: Female
  Weight: 64 kg

DRUGS (27)
  1. AVASTIN [Suspect]
     Active Substance: BEVACIZUMAB
     Indication: Ovarian cancer
     Route: 042
  2. AVASTIN [Suspect]
     Active Substance: BEVACIZUMAB
     Route: 042
     Dates: start: 20200902, end: 20210407
  3. AVASTIN [Suspect]
     Active Substance: BEVACIZUMAB
     Route: 042
     Dates: start: 20210421, end: 20210630
  4. AVASTIN [Suspect]
     Active Substance: BEVACIZUMAB
     Route: 042
     Dates: start: 20210714, end: 20210728
  5. AVASTIN [Suspect]
     Active Substance: BEVACIZUMAB
     Dosage: ADDITIONAL BATCH/LOT FROM 15-SEP-2021: B8690B93 (30-APR-2023)
     Route: 042
     Dates: start: 20210818, end: 20210915
  6. AVASTIN [Suspect]
     Active Substance: BEVACIZUMAB
     Dosage: ADDITIONAL BATCH/LOT FROM 13-OCT-2021: H0272B03?31/AUG/2022
     Route: 042
     Dates: start: 20210929, end: 20211013
  7. AVASTIN [Suspect]
     Active Substance: BEVACIZUMAB
     Dosage: H0272B03 31-AUG-2022
     Route: 042
     Dates: start: 20211027, end: 20211027
  8. AVASTIN [Suspect]
     Active Substance: BEVACIZUMAB
     Route: 042
     Dates: start: 20211124, end: 20220525
  9. AVASTIN [Suspect]
     Active Substance: BEVACIZUMAB
     Route: 042
     Dates: start: 20211110, end: 20211110
  10. AVASTIN [Suspect]
     Active Substance: BEVACIZUMAB
     Route: 042
     Dates: start: 20211124
  11. AVASTIN [Suspect]
     Active Substance: BEVACIZUMAB
     Route: 042
     Dates: start: 20220608
  12. AVASTIN [Suspect]
     Active Substance: BEVACIZUMAB
     Route: 042
     Dates: start: 20221005
  13. BRICANYL [Suspect]
     Active Substance: TERBUTALINE SULFATE
     Indication: Dyspnoea
     Route: 065
  14. PACLITAXEL [Suspect]
     Active Substance: PACLITAXEL
     Indication: Ovarian cancer
     Route: 065
  15. CELEBREX [Concomitant]
     Active Substance: CELECOXIB
     Indication: Back pain
  16. GABAPENTIN [Concomitant]
     Active Substance: GABAPENTIN
     Indication: Product used for unknown indication
  17. ROSUVASTATIN [Concomitant]
     Active Substance: ROSUVASTATIN
     Indication: Product used for unknown indication
  18. TYLENOL [Concomitant]
     Active Substance: ACETAMINOPHEN
     Indication: Product used for unknown indication
     Dates: end: 2021
  19. NORVASC [Concomitant]
     Active Substance: AMLODIPINE BESYLATE
     Indication: Product used for unknown indication
  20. CETIRIZINE HYDROCHLORIDE [Concomitant]
     Active Substance: CETIRIZINE HYDROCHLORIDE
  21. TRIAZIDE [HYDROCHLOROTHIAZIDE;TRIAMTERENE] [Concomitant]
     Indication: Product used for unknown indication
  22. ASPIRIN [Concomitant]
     Active Substance: ASPIRIN
  23. VALACYCLOVIR [Concomitant]
     Active Substance: VALACYCLOVIR HYDROCHLORIDE
     Indication: Oral herpes
  24. PENNSAID [Concomitant]
     Active Substance: DICLOFENAC SODIUM
     Indication: Arthralgia
  25. PERINDOPRIL [Concomitant]
     Active Substance: PERINDOPRIL
     Indication: Hypertension
     Dates: start: 20201218
  26. CEPHALEX [Concomitant]
     Indication: Cellulitis
  27. PERINDOPRIL [Concomitant]
     Active Substance: PERINDOPRIL

REACTIONS (20)
  - Hypertension [Unknown]
  - Pneumonia viral [Recovered/Resolved]
  - Blood pressure systolic increased [Unknown]
  - Blood pressure diastolic abnormal [Unknown]
  - Drug ineffective [Unknown]
  - Blood pressure increased [Recovered/Resolved]
  - Arthralgia [Recovering/Resolving]
  - Oxygen saturation decreased [Unknown]
  - Ligament sprain [Unknown]
  - Blood pressure diastolic decreased [Unknown]
  - Urinary tract infection [Unknown]
  - Abdominal pain lower [Not Recovered/Not Resolved]
  - Micturition urgency [Not Recovered/Not Resolved]
  - Onychalgia [Not Recovered/Not Resolved]
  - Nail discolouration [Unknown]
  - Nail discomfort [Not Recovered/Not Resolved]
  - Epistaxis [Recovered/Resolved]
  - Weight decreased [Unknown]
  - Sinusitis [Unknown]
  - Laryngitis [Not Recovered/Not Resolved]

NARRATIVE: CASE EVENT DATE: 20201014
